FAERS Safety Report 20785640 (Version 3)
Quarter: 2022Q3

REPORT INFORMATION
  Report Type: Report from Study
  Country: JP (occurrence: JP)
  Receive Date: 20220504
  Receipt Date: 20220825
  Transmission Date: 20221027
  Serious: Yes (Hospitalization, Other)
  Sender: FDA-Public Use
  Company Number: JP-ONO-2022JP011545

PATIENT
  Age: 75 Year
  Sex: Female
  Weight: 58 kg

DRUGS (14)
  1. ETELCALCETIDE [Suspect]
     Active Substance: ETELCALCETIDE
     Indication: Hyperparathyroidism secondary
     Dosage: 5 MILLIGRAM
     Route: 010
     Dates: start: 20191130, end: 20200423
  2. ETELCALCETIDE [Suspect]
     Active Substance: ETELCALCETIDE
     Dosage: 2.5 MILLIGRAM
     Route: 010
     Dates: start: 20200425
  3. EPOETIN ALFA [Concomitant]
     Active Substance: ERYTHROPOIETIN
     Dosage: 9000 INTERNATIONAL UNIT, QWK
     Route: 065
     Dates: end: 20200319
  4. DARBEPOETIN ALFA [Concomitant]
     Active Substance: DARBEPOETIN ALFA
     Dosage: 40 MICROGRAM, QWK
     Route: 065
     Dates: start: 20200324, end: 20200407
  5. DARBEPOETIN ALFA [Concomitant]
     Active Substance: DARBEPOETIN ALFA
     Dosage: 60 MICROGRAM, QWK
     Dates: start: 20200414, end: 20201215
  6. DARBEPOETIN ALFA [Concomitant]
     Active Substance: DARBEPOETIN ALFA
     Dosage: 40 MICROGRAM, QWK
     Dates: start: 20201222, end: 20210608
  7. DARBEPOETIN ALFA [Concomitant]
     Active Substance: DARBEPOETIN ALFA
     Dosage: 60 MICROGRAM, QWK
     Dates: start: 20210615, end: 20220124
  8. OXAROL [Concomitant]
     Active Substance: MAXACALCITOL
     Dosage: 5 MICROGRAM, Q56H
     Route: 065
     Dates: start: 20191102, end: 20191219
  9. OXAROL [Concomitant]
     Active Substance: MAXACALCITOL
     Dosage: 2.5 MICROGRAM, Q56H
     Route: 065
     Dates: start: 20191221, end: 20200528
  10. OXAROL [Concomitant]
     Active Substance: MAXACALCITOL
     Dosage: 2.5 MICROGRAM, Q84H
     Route: 065
     Dates: start: 20200530, end: 20200616
  11. OXAROL [Concomitant]
     Active Substance: MAXACALCITOL
     Dosage: 2.5 MICROGRAM, QWK
     Route: 065
     Dates: start: 20200620
  12. P-tol [Concomitant]
     Dosage: 1500 MILLIGRAM, QD
     Route: 048
     Dates: end: 20210824
  13. CALTAN [Concomitant]
     Active Substance: CALCIUM CARBONATE
     Dosage: 1500 MILLIGRAM, QD
     Route: 048
     Dates: start: 20191224
  14. ROXADUSTAT [Concomitant]
     Active Substance: ROXADUSTAT
     Dosage: 300 MILLIGRAM, QWK
     Route: 048
     Dates: start: 20220126

REACTIONS (5)
  - Calculus urinary [Recovering/Resolving]
  - Nephritis bacterial [Recovering/Resolving]
  - Nephritis [Recovering/Resolving]
  - Nephritis bacterial [Recovering/Resolving]
  - Anaemia [Recovering/Resolving]

NARRATIVE: CASE EVENT DATE: 20210817
